FAERS Safety Report 24758398 (Version 1)
Quarter: 2024Q4

REPORT INFORMATION
  Report Type: Spontaneous
  Country: BR (occurrence: BR)
  Receive Date: 20241220
  Receipt Date: 20241220
  Transmission Date: 20250115
  Serious: Yes (Hospitalization)
  Sender: ASTELLAS
  Company Number: BR-ASTELLAS-2024-AER-022548

PATIENT
  Sex: Female

DRUGS (2)
  1. XOSPATA [Suspect]
     Active Substance: GILTERITINIB
     Indication: Product used for unknown indication
     Dosage: UNKNOWN DOSE AND FREQUENCY
     Route: 065
  2. XOSPATA [Suspect]
     Active Substance: GILTERITINIB
     Dosage: UNKNOWN DOSE AND FREQUENCY
     Route: 065

REACTIONS (1)
  - General physical health deterioration [Unknown]
